FAERS Safety Report 15785557 (Version 1)
Quarter: 2019Q1

REPORT INFORMATION
  Report Type: Spontaneous
  Country: TW (occurrence: TW)
  Receive Date: 20190103
  Receipt Date: 20190103
  Transmission Date: 20190417
  Serious: Yes (Hospitalization)
  Sender: FDA-Public Use
  Company Number: TW-MYLANLABS-2018M1097231

PATIENT
  Age: 31 Year
  Sex: Female

DRUGS (3)
  1. LITHIUM. [Suspect]
     Active Substance: LITHIUM
     Indication: MANIA
     Route: 065
  2. LITHIUM. [Interacting]
     Active Substance: LITHIUM
     Dosage: TITRATED TO 900 MG/DAY
     Route: 065
  3. CLOTIAPINE [Interacting]
     Active Substance: CLOTHIAPINE
     Indication: MANIA
     Route: 065

REACTIONS (2)
  - Drug interaction [Recovered/Resolved]
  - Pleurothotonus [Recovered/Resolved]
